FAERS Safety Report 6797881-3 (Version None)
Quarter: 2010Q2

REPORT INFORMATION
  Report Type: 
  Country: None (occurrence: None)
  Receive Date: 20100623
  Receipt Date: 20100614
  Transmission Date: 20101027
  Serious: Yes (Other)
  Sender: FDA-Public Use
  Company Number: TRP_06593_2009

PATIENT
  Sex: Female

DRUGS (2)
  1. RIBAVARIN [Suspect]
     Indication: HEPATITIS C
     Dosage: (1200 MG, DAILY ORAL)
     Route: 048
     Dates: start: 20091022
  2. PEGASYS [Suspect]
     Indication: HEPATITIS C
     Dosage: (180 UG 1X/WEEK SUBCUATANEOUS)
     Route: 058
     Dates: start: 20091022

REACTIONS (9)
  - ARTHRALGIA [None]
  - BACK PAIN [None]
  - DECREASED APPETITE [None]
  - DEPRESSION [None]
  - DIARRHOEA [None]
  - DRY SKIN [None]
  - INCREASED TENDENCY TO BRUISE [None]
  - NO THERAPEUTIC RESPONSE [None]
  - RASH [None]
